FAERS Safety Report 6481410-8 (Version None)
Quarter: 2009Q4

REPORT INFORMATION
  Report Type: 
  Country: None (occurrence: None)
  Receive Date: 20091203
  Receipt Date: 20091120
  Transmission Date: 20100525
  Serious: Yes (Hospitalization, Disabling)
  Sender: FDA-Public Use
  Company Number: 1000009962

PATIENT
  Age: 27 Year
  Sex: Male

DRUGS (4)
  1. ESCITALOPRAM OXALATE [Suspect]
     Indication: DEPRESSIVE SYMPTOM
     Dosage: 10 MG (10 MG,1 IN 1 D),ORAL ; 5 MG (5 MG,1 IN 1 D),ORAL
     Route: 048
     Dates: start: 20090902, end: 20090914
  2. ESCITALOPRAM OXALATE [Suspect]
     Indication: DEPRESSIVE SYMPTOM
     Dosage: 10 MG (10 MG,1 IN 1 D),ORAL ; 5 MG (5 MG,1 IN 1 D),ORAL
     Route: 048
     Dates: start: 20090915, end: 20091029
  3. COPIXOL-ACUPHASE-(INJECTION) [Concomitant]
  4. QUETIAPINE (INJECTION) [Concomitant]

REACTIONS (1)
  - INFLAMMATORY BOWEL DISEASE [None]
